FAERS Safety Report 25643707 (Version 1)
Quarter: 2025Q3

REPORT INFORMATION
  Report Type: Spontaneous
  Country: MX (occurrence: None)
  Receive Date: 20250802
  Receipt Date: 20250802
  Transmission Date: 20251020
  Serious: Yes (Other)
  Sender: FDA-CTU
  Company Number: None

PATIENT
  Age: 65 Year
  Sex: Male
  Weight: 90 kg

DRUGS (2)
  1. WEGOVY [Suspect]
     Active Substance: SEMAGLUTIDE
     Indication: Weight decreased
     Route: 030
     Dates: start: 20250622, end: 20250727
  2. VITAMINS [Concomitant]
     Active Substance: VITAMINS

REACTIONS (7)
  - Injection site vesicles [None]
  - Dry skin [None]
  - Lip dry [None]
  - Rash [None]
  - Dry eye [None]
  - Eye pain [None]
  - Therapy interrupted [None]

NARRATIVE: CASE EVENT DATE: 20250727
